FAERS Safety Report 13580602 (Version 1)
Quarter: 2017Q2

REPORT INFORMATION
  Report Type: Report from Study
  Country: IT (occurrence: IT)
  Receive Date: 20170525
  Receipt Date: 20170525
  Transmission Date: 20170830
  Serious: Yes (Other)
  Sender: FDA-Public Use
  Company Number: IT-ROCHE-1937621

PATIENT

DRUGS (2)
  1. METHYLPREDNISOLONE. [Suspect]
     Active Substance: METHYLPREDNISOLONE
     Indication: RHEUMATOID ARTHRITIS
     Dosage: PULSE
     Route: 042
  2. RITUXIMAB [Suspect]
     Active Substance: RITUXIMAB
     Indication: RHEUMATOID ARTHRITIS
     Route: 042

REACTIONS (9)
  - Sepsis [Unknown]
  - Lymphocyte count decreased [Unknown]
  - Cardiac failure acute [Unknown]
  - Gastric ulcer [Unknown]
  - Infection [Unknown]
  - Pneumonia [Unknown]
  - Extranodal marginal zone B-cell lymphoma (MALT type) [Unknown]
  - Hepatic enzyme increased [Unknown]
  - Encephalitis [Unknown]
